FAERS Safety Report 19950443 (Version 1)
Quarter: 2021Q4

REPORT INFORMATION
  Report Type: Spontaneous
  Country: US (occurrence: US)
  Receive Date: 20211011
  Receipt Date: 20211011
  Transmission Date: 20220304
  Serious: Yes (Hospitalization)
  Sender: FDA-Public Use
  Company Number: None

PATIENT
  Age: 43 Year
  Sex: Female

DRUGS (1)
  1. STELARA [Suspect]
     Active Substance: USTEKINUMAB
     Indication: Crohn^s disease
     Dosage: ?          OTHER FREQUENCY:Q8 WKS ;
     Route: 058
     Dates: start: 20180310

REACTIONS (4)
  - Vomiting [None]
  - Abdominal discomfort [None]
  - Ileostomy [None]
  - Condition aggravated [None]

NARRATIVE: CASE EVENT DATE: 20211004
